FAERS Safety Report 17056154 (Version 1)
Quarter: 2019Q4

REPORT INFORMATION
  Report Type: Spontaneous
  Country: US (occurrence: US)
  Receive Date: 20191121
  Receipt Date: 20191121
  Transmission Date: 20200122
  Serious: Yes (Hospitalization, Other)
  Sender: FDA-Public Use
  Company Number: US-AUROBINDO-AUR-APL-2019-073393

PATIENT
  Age: 47 Year
  Sex: Female

DRUGS (1)
  1. PRAMIPEXOLE. [Suspect]
     Active Substance: PRAMIPEXOLE
     Indication: RESTLESS LEGS SYNDROME
     Dosage: UNK (HIGH-DOSE, 2-3 MG BID)
     Route: 065
     Dates: start: 2014

REACTIONS (3)
  - Gambling disorder [Recovered/Resolved]
  - Condition aggravated [Recovered/Resolved]
  - Prescribed overdose [Unknown]
